FAERS Safety Report 21484876 (Version 2)
Quarter: 2022Q4

REPORT INFORMATION
  Report Type: Report from Study
  Country: US (occurrence: US)
  Receive Date: 20221020
  Receipt Date: 20221115
  Transmission Date: 20230113
  Serious: No
  Sender: FDA-Public Use
  Company Number: US-ABBVIE-4161456

PATIENT
  Age: 77 Year
  Sex: Male
  Weight: 83.914 kg

DRUGS (3)
  1. DUOPA [Suspect]
     Active Substance: CARBIDOPA\LEVODOPA
     Indication: Parkinson^s disease
     Route: 050
     Dates: start: 20221006, end: 20221011
  2. DUOPA [Suspect]
     Active Substance: CARBIDOPA\LEVODOPA
     Indication: Product used for unknown indication
     Dosage: 16 HOURS?MD 9.0ML AND CD 1.0ML
     Route: 050
     Dates: start: 20221006, end: 20221011
  3. AMLODIPINE [Concomitant]
     Active Substance: AMLODIPINE BESYLATE
     Indication: Hypertension
     Dosage: 5 MG

REACTIONS (9)
  - Adverse drug reaction [Unknown]
  - Drug intolerance [Recovering/Resolving]
  - Somnolence [Unknown]
  - Device issue [Not Recovered/Not Resolved]
  - Paradoxical drug reaction [Unknown]
  - Overdose [Unknown]
  - Feeling abnormal [Recovering/Resolving]
  - Muscle rigidity [Unknown]
  - Confusional state [Recovering/Resolving]

NARRATIVE: CASE EVENT DATE: 20221001
